FAERS Safety Report 8924841 (Version 1)
Quarter: 2012Q4

REPORT INFORMATION
  Report Type: 
  Country: CN (occurrence: CN)
  Receive Date: 20121126
  Receipt Date: 20121126
  Transmission Date: 20130627
  Serious: Yes (Other)
  Sender: FDA-Public Use
  Company Number: CN-BAYER-2012-120837

PATIENT
  Age: 64 Year
  Sex: Female

DRUGS (4)
  1. BAYASPIRIN [Suspect]
     Indication: CORONARY ARTERIAL STENT INSERTION
     Dosage: 1 DF, QD
     Route: 048
     Dates: start: 2008
  2. BAYASPIRIN [Suspect]
     Indication: CORONARY ARTERIAL STENT INSERTION
     Dosage: UNK
     Dates: start: 20121111, end: 20121113
  3. GLUCOBAY [Concomitant]
     Dosage: 1 DF, TID
     Route: 048
  4. PLAVIX [Concomitant]
     Indication: CARDIAC DISORDER PROPHYLAXIS
     Dosage: 1 DF, QD
     Route: 048
     Dates: start: 2008

REACTIONS (4)
  - Amaurosis [Recovering/Resolving]
  - Palpitations [Recovering/Resolving]
  - Asthenia [Recovering/Resolving]
  - Wrong drug administered [Recovered/Resolved]
